FAERS Safety Report 7798046-9 (Version None)
Quarter: 2011Q3

REPORT INFORMATION
  Report Type: 
  Country: None (occurrence: None)
  Receive Date: 20110921
  Receipt Date: 20110916
  Transmission Date: 20111222
  Serious: Yes (Life-Threatening, Hospitalization)
  Sender: FDA-Public Use
  Company Number: 2011029802

PATIENT
  Age: 65 Year
  Sex: Female
  Weight: 47.6277 kg

DRUGS (22)
  1. HIZENTRA [Suspect]
  2. ZOFRAN [Concomitant]
  3. METOPROLOL TARTRATE [Concomitant]
  4. ASPIRIN [Concomitant]
  5. HIZENTRA [Suspect]
     Indication: HYPOGAMMAGLOBULINAEMIA
     Dosage: (4 G 1XWEEK, INFUSED VIA TWO SITES (275 ML PER HOUR) SUBCUTANEOUS), (), ()
     Route: 058
     Dates: start: 20110905
  6. HIZENTRA [Suspect]
     Indication: IMMUNODEFICIENCY COMMON VARIABLE
     Dosage: (4 G 1XWEEK, INFUSED VIA TWO SITES (275 ML PER HOUR) SUBCUTANEOUS), (), ()
     Route: 058
     Dates: start: 20110905
  7. HIZENTRA [Suspect]
     Indication: HYPOGAMMAGLOBULINAEMIA
     Dosage: (4 G 1XWEEK, INFUSED VIA TWO SITES (275 ML PER HOUR) SUBCUTANEOUS), (), ()
     Route: 058
     Dates: start: 20110905
  8. HIZENTRA [Suspect]
     Indication: IMMUNODEFICIENCY COMMON VARIABLE
     Dosage: (4 G 1XWEEK, INFUSED VIA TWO SITES (275 ML PER HOUR) SUBCUTANEOUS), (), ()
     Route: 058
     Dates: start: 20110905
  9. HIZENTRA [Suspect]
     Indication: HYPOGAMMAGLOBULINAEMIA
     Dosage: (4 G 1XWEEK, INFUSED VIA TWO SITES (275 ML PER HOUR) SUBCUTANEOUS), (), ()
     Route: 058
     Dates: start: 20100928
  10. HIZENTRA [Suspect]
     Indication: IMMUNODEFICIENCY COMMON VARIABLE
     Dosage: (4 G 1XWEEK, INFUSED VIA TWO SITES (275 ML PER HOUR) SUBCUTANEOUS), (), ()
     Route: 058
     Dates: start: 20100928
  11. MUCINEX [Concomitant]
  12. AMITRIPTYLINE HCL [Concomitant]
  13. ADVAIR DISKUS 100/50 [Concomitant]
  14. XOPENEX [Concomitant]
  15. ALLEGRA [Concomitant]
  16. ACETAMINOPHEN [Concomitant]
  17. FOSAMAX [Concomitant]
  18. BENTYL [Concomitant]
  19. IMITREX [Concomitant]
  20. SINGULAIR [Concomitant]
  21. SYMBICORT [Concomitant]
  22. NEXIUM [Concomitant]

REACTIONS (4)
  - ATRIAL FIBRILLATION [None]
  - MYOCARDIAL INFARCTION [None]
  - HEART RATE INCREASED [None]
  - HYPERTENSION [None]
